FAERS Safety Report 14745012 (Version 1)
Quarter: 2018Q2

REPORT INFORMATION
  Report Type: Spontaneous
  Country: US (occurrence: US)
  Receive Date: 20180411
  Receipt Date: 20180411
  Transmission Date: 20180711
  Serious: No
  Sender: FDA-Public Use
  Company Number: US-PFIZER INC-2018146311

PATIENT
  Age: 59 Year
  Sex: Male

DRUGS (1)
  1. ALTACE [Suspect]
     Active Substance: RAMIPRIL
     Dosage: UNK

REACTIONS (2)
  - Swelling [Unknown]
  - Drug hypersensitivity [Unknown]
